FAERS Safety Report 8645263 (Version 2)
Quarter: 2012Q4

REPORT INFORMATION
  Report Type: Spontaneous
  Country: US (occurrence: None)
  Receive Date: 20120620
  Receipt Date: 20120822
  Transmission Date: 20130627
  Serious: Yes (Other)
  Sender: FDA-Public Use
  Company Number: 2012MA007387

PATIENT
  Age: 45 Year
  Sex: Female

DRUGS (17)
  1. PERMETHRIN [Suspect]
     Indication: LICE INFESTATION
     Dosage: 1 PCT;X1;TOP
     Route: 061
     Dates: start: 201105, end: 201105
  2. TRAMADOL HYDROCHLORIDE [Suspect]
     Dates: start: 20110421
  3. TRAMADOL HYDROCHLORIDE [Suspect]
     Dates: start: 20110421
  4. DICLOFENAC SODIUM [Suspect]
  5. CYMBALTA [Concomitant]
  6. TIZANIDINE [Concomitant]
  7. SAVELLA [Concomitant]
  8. CELEXA [Concomitant]
  9. KLONOPIN [Concomitant]
  10. IMITREX [Concomitant]
  11. CHANTIX [Concomitant]
  12. LORTAB [Concomitant]
  13. FLEXERIL [Concomitant]
  14. 0DEPO-MEDROL [Concomitant]
  15. MARCAINE [Concomitant]
  16. PENICILLIN [Concomitant]
  17. CYMBALTA [Concomitant]

REACTIONS (6)
  - Headache [None]
  - Alopecia [None]
  - Skin ulcer [None]
  - Deafness unilateral [None]
  - Insomnia [None]
  - Muscle tightness [None]
